FAERS Safety Report 14582917 (Version 3)
Quarter: 2018Q3

REPORT INFORMATION
  Report Type: Spontaneous
  Country: JP (occurrence: JP)
  Receive Date: 20180228
  Receipt Date: 20180706
  Transmission Date: 20181010
  Serious: Yes (Hospitalization, Other)
  Sender: FDA-Public Use
  Company Number: JP-GLAXOSMITHKLINE-JP2018JPN031342

PATIENT
  Age: 20 Year
  Sex: Female
  Weight: 69 kg

DRUGS (7)
  1. KIPRES TABLETS [Concomitant]
     Indication: ASTHMA
     Dosage: 10 MG, QD
     Dates: start: 20160709
  2. LAMICTAL [Suspect]
     Active Substance: LAMOTRIGINE
     Indication: BIPOLAR DISORDER
     Dosage: 25 MG, QOD
     Route: 048
     Dates: start: 20171108, end: 20171121
  3. BELSOMRA [Concomitant]
     Active Substance: SUVOREXANT
     Indication: INSOMNIA
     Dosage: 20 MG, QD
     Dates: start: 20170305
  4. SODIUM VALPROATE SR [Concomitant]
     Indication: BIPOLAR DISORDER
     Dosage: 200 MG, BID
     Dates: start: 201608, end: 20171123
  5. ARIPIPRAZOLE. [Concomitant]
     Active Substance: ARIPIPRAZOLE
     Indication: DEPRESSION
     Dosage: 60 MG, BID
     Dates: start: 20170319
  6. LAMICTAL [Suspect]
     Active Substance: LAMOTRIGINE
     Dosage: 25 MG, QD
     Route: 048
     Dates: start: 20171122, end: 20171123
  7. LEXAPRO [Concomitant]
     Active Substance: ESCITALOPRAM OXALATE
     Indication: DEPRESSION
     Dosage: 10 MG, QD
     Dates: start: 20170620

REACTIONS (14)
  - Burning sensation [Recovering/Resolving]
  - Skin exfoliation [Recovering/Resolving]
  - Oral pain [Unknown]
  - Erythema multiforme [Recovering/Resolving]
  - Swelling face [Recovering/Resolving]
  - Rash [Recovering/Resolving]
  - Malaise [Unknown]
  - Drug eruption [Recovering/Resolving]
  - Oedema [Recovering/Resolving]
  - Pyrexia [Recovering/Resolving]
  - Lip erosion [Recovering/Resolving]
  - Erythema of eyelid [Unknown]
  - Drug-induced liver injury [Recovering/Resolving]
  - Ocular hyperaemia [Recovering/Resolving]

NARRATIVE: CASE EVENT DATE: 201711
